FAERS Safety Report 13888701 (Version 1)
Quarter: 2017Q3

REPORT INFORMATION
  Report Type: Spontaneous
  Country: US (occurrence: None)
  Receive Date: 20170816
  Receipt Date: 20170816
  Transmission Date: 20171127
  Serious: Yes (Death)
  Sender: FDA-Public Use
  Company Number: None

PATIENT
  Age: 26 Year
  Sex: Male

DRUGS (18)
  1. DOXYCYCL HYC [Concomitant]
  2. ONDANSETRON [Concomitant]
     Active Substance: ONDANSETRON
  3. FLUOXETINE [Concomitant]
     Active Substance: FLUOXETINE HYDROCHLORIDE
  4. A-HYDROCORT [Concomitant]
     Active Substance: HYDROCORTISONE SODIUM SUCCINATE
  5. NOVOLOG [Concomitant]
     Active Substance: INSULIN ASPART
  6. OXYCONTIN [Concomitant]
     Active Substance: OXYCODONE HYDROCHLORIDE
  7. HYDROMORPHON [Concomitant]
     Active Substance: HYDROMORPHONE
  8. LEVOFLOXACIN. [Concomitant]
     Active Substance: LEVOFLOXACIN
  9. PRADAXA [Concomitant]
     Active Substance: DABIGATRAN ETEXILATE MESYLATE
  10. QUETIAPINE. [Concomitant]
     Active Substance: QUETIAPINE
  11. OXYCONDEON [Concomitant]
  12. ANTACID [Concomitant]
     Active Substance: ALUMINUM HYDROXIDE\CALCIUM CARBONATE\DIMETHICONE\MAGNESIUM HYDROXIDE
  13. PANROPRAZOLE [Concomitant]
  14. AFINITOR [Suspect]
     Active Substance: EVEROLIMUS
     Indication: NEOPLASM MALIGNANT
     Dosage: 10 MG ONCE DAILY BY MOUTH
     Route: 048
     Dates: start: 201703
  15. LORAZEPAM. [Concomitant]
     Active Substance: LORAZEPAM
  16. ROZEREM [Concomitant]
     Active Substance: RAMELTEON
  17. FLUDRONCORT [Concomitant]
  18. LIDOCAINE. [Concomitant]
     Active Substance: LIDOCAINE

REACTIONS (1)
  - Death [None]

NARRATIVE: CASE EVENT DATE: 20170809
